FAERS Safety Report 21505934 (Version 1)
Quarter: 2022Q4

REPORT INFORMATION
  Report Type: Spontaneous
  Country: RO (occurrence: RO)
  Receive Date: 20221026
  Receipt Date: 20221026
  Transmission Date: 20230112
  Serious: Yes (Life-Threatening, Other)
  Sender: FDA-Public Use
  Company Number: RO-AstraZeneca-2022A347766

PATIENT

DRUGS (4)
  1. ZOLADEX [Suspect]
     Active Substance: GOSERELIN ACETATE
     Indication: Breast cancer
     Dosage: UNK
     Route: 058
  2. ZOLADEX [Suspect]
     Active Substance: GOSERELIN ACETATE
     Indication: Breast cancer
     Dosage: UNK
     Route: 065
  3. TAMOXIFEN CITRATE [Suspect]
     Active Substance: TAMOXIFEN CITRATE
     Indication: Product used for unknown indication
     Dosage: UNK
     Route: 048
  4. PALBOCICLIB [Suspect]
     Active Substance: PALBOCICLIB
     Indication: Product used for unknown indication
     Dosage: IT WAS ADMINISTERED EVERY 3 WEEKS WITH 1 WEEK PAUSE
     Route: 065

REACTIONS (5)
  - Drug interaction [Unknown]
  - Anaphylactic shock [Unknown]
  - Breast cancer recurrent [Unknown]
  - Neutrophil count decreased [Unknown]
  - Endometrial hypertrophy [Unknown]

NARRATIVE: CASE EVENT DATE: 20170101
